FAERS Safety Report 7889322-X (Version None)
Quarter: 2011Q4

REPORT INFORMATION
  Report Type: 
  Country: None (occurrence: None)
  Receive Date: 20111103
  Receipt Date: 20111026
  Transmission Date: 20120403
  Serious: Yes (Hospitalization)
  Sender: FDA-Public Use
  Company Number: CA-B.I. PHARMACEUTICALS,INC./RIDGEFIELD-2011-CN-01648CN

PATIENT
  Sex: Male

DRUGS (3)
  1. DILTIAZEM HCL [Concomitant]
  2. PRADAXA [Suspect]
     Dosage: 300 MG
     Dates: start: 20110518, end: 20111015
  3. METOPROLOL TARTRATE [Concomitant]

REACTIONS (1)
  - PANCREATITIS [None]
